FAERS Safety Report 8217291-1 (Version None)
Quarter: 2012Q1

REPORT INFORMATION
  Report Type: 
  Country: None (occurrence: None)
  Receive Date: 20120315
  Receipt Date: 20120216
  Transmission Date: 20120608
  Serious: Yes (Congenital Anomaly)
  Sender: FDA-Public Use
  Company Number: ADR-UNK-049

PATIENT
  Age: 238 Day
  Sex: Male
  Weight: 2.36 kg

DRUGS (3)
  1. STAVUDINE [Suspect]
     Indication: ACQUIRED IMMUNODEFICIENCY SYNDROME
     Dosage: 80 MG/DAY + ORAL
     Route: 048
  2. LAMIVUDINE (EPIVIR HBV) [Concomitant]
  3. NELFINAVIR MESYLATE [Concomitant]

REACTIONS (3)
  - MATERNAL DRUGS AFFECTING FOETUS [None]
  - ILEAL STENOSIS [None]
  - ILEAL ATRESIA [None]
